FAERS Safety Report 16406407 (Version 2)
Quarter: 2019Q2

REPORT INFORMATION
  Report Type: Spontaneous
  Country: FR (occurrence: FR)
  Receive Date: 20190607
  Receipt Date: 20190612
  Transmission Date: 20190711
  Serious: Yes (Hospitalization)
  Sender: FDA-Public Use
  Company Number: FR-MYLANLABS-2019M1052606

PATIENT
  Age: 83 Year
  Sex: Male
  Weight: 62.3 kg

DRUGS (12)
  1. SPIRONOLACTONE. [Suspect]
     Active Substance: SPIRONOLACTONE
     Indication: HYPERTENSION
     Dosage: 25 MILLIGRAM, QD
     Route: 048
     Dates: start: 2017
  2. IMOVANE [Suspect]
     Active Substance: ZOPICLONE
     Indication: INSOMNIA
     Dosage: 1 DOSAGE FORM, QD
     Route: 048
     Dates: start: 2014, end: 20181120
  3. LASILIX                            /00032601/ [Suspect]
     Active Substance: FUROSEMIDE
     Indication: HYPERTENSION
     Dosage: 4 DOSAGE FORM, QD
     Route: 048
     Dates: start: 2017, end: 20181120
  4. OMEXEL [Suspect]
     Active Substance: TAMSULOSIN HYDROCHLORIDE
     Indication: BENIGN PROSTATIC HYPERPLASIA
     Dosage: 1 DOSAGE FORM, QD
     Route: 048
     Dates: start: 2014, end: 20181120
  5. TENORDATE [Suspect]
     Active Substance: ATENOLOL\NIFEDIPINE
     Indication: HYPERTENSION
     Dosage: 1 DOSAGE FORM, QD
     Route: 048
     Dates: start: 2014
  6. AVODART [Concomitant]
     Active Substance: DUTASTERIDE
     Dosage: UNK
  7. SERESTA [Suspect]
     Active Substance: OXAZEPAM
     Indication: ANXIETY
     Dosage: 1 DOSAGE FORM, QD
     Route: 048
     Dates: start: 20180405
  8. ESCITALOPRAM [Suspect]
     Active Substance: ESCITALOPRAM OXALATE
     Indication: DEPRESSION
     Dosage: 5 MILLIGRAM, QD
     Route: 048
     Dates: start: 20180405, end: 20181120
  9. CANDESARTAN. [Suspect]
     Active Substance: CANDESARTAN
     Indication: HYPERTENSION
     Dosage: 16 MILLIGRAM, QD
     Route: 048
  10. SEEBRI BREEZHALER [Concomitant]
     Active Substance: GLYCOPYRROLATE
     Dosage: UNK
  11. LOVENOX [Concomitant]
     Active Substance: ENOXAPARIN SODIUM
     Dosage: UNK
  12. KARDEGIC [Concomitant]
     Active Substance: ASPIRIN DL-LYSINE
     Dosage: UNK

REACTIONS (1)
  - Fall [Not Recovered/Not Resolved]

NARRATIVE: CASE EVENT DATE: 2018
